FAERS Safety Report 4311572-X (Version None)
Quarter: 2004Q1

REPORT INFORMATION
  Report Type: 
  Country: None (occurrence: None)
  Receive Date: 20040302
  Receipt Date: 20031117
  Transmission Date: 20041129
  Serious: No
  Sender: FDA-Public Use
  Company Number: 200328511BWH

PATIENT
  Age: 79 Year
  Sex: Male
  Weight: 63.5036 kg

DRUGS (5)
  1. LEVITRA [Suspect]
     Indication: ERECTILE DYSFUNCTION
     Dosage: 10 MG, PRN, ORAL; 10 MG, ONCE, ORAL; 10 MG, ONCE, ORAL
     Route: 048
     Dates: start: 20031029
  2. LEVITRA [Suspect]
     Indication: ERECTILE DYSFUNCTION
     Dosage: 10 MG, PRN, ORAL; 10 MG, ONCE, ORAL; 10 MG, ONCE, ORAL
     Route: 048
     Dates: start: 20031105
  3. LEVITRA [Suspect]
     Indication: ERECTILE DYSFUNCTION
     Dosage: 10 MG, PRN, ORAL; 10 MG, ONCE, ORAL; 10 MG, ONCE, ORAL
     Route: 048
     Dates: start: 20031112
  4. LIPITOR [Concomitant]
  5. VERAPAMIL [Concomitant]

REACTIONS (5)
  - DISCOMFORT [None]
  - ERECTILE DYSFUNCTION [None]
  - SCROTAL HAEMATOMA [None]
  - SENSATION OF PRESSURE [None]
  - TESTICULAR SWELLING [None]
